FAERS Safety Report 20751584 (Version 2)
Quarter: 2022Q2

REPORT INFORMATION
  Report Type: Spontaneous
  Country: US (occurrence: US)
  Receive Date: 20220426
  Receipt Date: 20220618
  Transmission Date: 20220720
  Serious: No
  Sender: FDA-Public Use
  Company Number: US-BRISTOL-MYERS SQUIBB COMPANY-2022-024409

PATIENT
  Age: 85 Year
  Sex: Female

DRUGS (1)
  1. REVLIMID [Suspect]
     Active Substance: LENALIDOMIDE
     Indication: Plasma cell myeloma
     Dosage: TAKE 1 CAPSULE(10 MG) BY MOUTH EVERY DAY ON DAYS 1-21,REPEAT EVERY 28 DAYS
     Route: 048
     Dates: start: 20220315

REACTIONS (3)
  - Skin reaction [Unknown]
  - Product dose omission issue [Unknown]
  - Product availability issue [Unknown]
